FAERS Safety Report 9518491 (Version 1)
Quarter: 2013Q3

REPORT INFORMATION
  Report Type: Spontaneous
  Country: US (occurrence: US)
  Receive Date: 20130912
  Receipt Date: 20130912
  Transmission Date: 20140515
  Serious: Yes (Other)
  Sender: FDA-Public Use
  Company Number: US-MILLENNIUM PHARMACEUTICALS, INC.-2013MPI000285

PATIENT
  Age: 34 Year
  Sex: Male

DRUGS (7)
  1. VELCADE [Suspect]
     Indication: MANTLE CELL LYMPHOMA
     Dosage: 1.3 MG/M2, 1.3 MG/M2, ON DAYS 1, 5, 8 AND 11
  2. VELCADE [Suspect]
     Dosage: CYCLIC
  3. RITUXIMAB [Suspect]
     Indication: MANTLE CELL LYMPHOMA
     Dosage: 375 MG/M2, ON DAY 1
  4. RITUXIMAB [Suspect]
     Dosage: CYCLIC
  5. PEGINTERFERON ALFA-2B [Suspect]
     Indication: MANTLE CELL LYMPHOMA
     Dosage: 0.18 MG, 1/WEEK
     Dates: end: 201005
  6. PEGINTERFERON ALFA-2B [Suspect]
     Dosage: 0.144 MG, 1/WEEK
     Dates: start: 201005, end: 201009
  7. PEGINTERFERON ALFA-2B [Suspect]
     Dosage: 0.108 MG, 1/WEEK
     Dates: start: 201009

REACTIONS (3)
  - Chronic graft versus host disease [Unknown]
  - Mantle cell lymphoma recurrent [Unknown]
  - Thrombocytopenia [Unknown]
